FAERS Safety Report 11153444 (Version 1)
Quarter: 2015Q2

REPORT INFORMATION
  Report Type: Spontaneous
  Country: CN (occurrence: CN)
  Receive Date: 20150602
  Receipt Date: 20150602
  Transmission Date: 20150821
  Serious: Yes (Disabling, Other)
  Sender: FDA-Public Use
  Company Number: CN-RANBAXY-2014R1-84555

PATIENT
  Age: 15 Year
  Sex: Male

DRUGS (1)
  1. TRIAMCINOLONE [Suspect]
     Active Substance: TRIAMCINOLONE
     Indication: VITILIGO
     Dosage: 1 DF, SINGLE
     Route: 058

REACTIONS (3)
  - Retinal artery occlusion [Unknown]
  - Cerebral infarction [Unknown]
  - Blindness [Not Recovered/Not Resolved]
